FAERS Safety Report 11864708 (Version 1)
Quarter: 2015Q4

REPORT INFORMATION
  Report Type: Spontaneous
  Country: US (occurrence: US)
  Receive Date: 20151223
  Receipt Date: 20151223
  Transmission Date: 20160305
  Serious: No
  Sender: FDA-Public Use
  Company Number: US-ASTRAZENECA-2015SF06826

PATIENT
  Sex: Female

DRUGS (5)
  1. SINGULAIR [Concomitant]
     Active Substance: MONTELUKAST SODIUM
  2. METFORMIN [Concomitant]
     Active Substance: METFORMIN HYDROCHLORIDE
     Indication: TYPE 2 DIABETES MELLITUS
     Route: 048
  3. FARXIGA [Suspect]
     Active Substance: DAPAGLIFLOZIN PROPANEDIOL
     Indication: TYPE 2 DIABETES MELLITUS
     Route: 048
  4. FLONASE [Concomitant]
     Active Substance: FLUTICASONE PROPIONATE
  5. GLYNASE [Concomitant]
     Active Substance: GLYBURIDE

REACTIONS (1)
  - Pain in extremity [Recovered/Resolved]
